FAERS Safety Report 20896312 (Version 3)
Quarter: 2022Q4

REPORT INFORMATION
  Report Type: Spontaneous
  Country: CN (occurrence: None)
  Receive Date: 20220531
  Receipt Date: 20221130
  Transmission Date: 20230113
  Serious: Yes (Hospitalization)
  Sender: FDA-Public Use
  Company Number: CN-ROCHE-3102459

PATIENT
  Age: 48 Year
  Sex: Female
  Weight: 68 kg

DRUGS (10)
  1. HERCEPTIN [Suspect]
     Active Substance: TRASTUZUMAB
     Indication: Invasive breast carcinoma
     Route: 042
     Dates: start: 20210710
  2. HERCEPTIN [Suspect]
     Active Substance: TRASTUZUMAB
     Route: 042
     Dates: start: 20210701
  3. IRON DEXTRAN [Concomitant]
     Active Substance: IRON DEXTRAN
     Indication: Anaemia
     Route: 048
     Dates: start: 20210702
  4. MAGNESIUM SULFATE [Concomitant]
     Active Substance: MAGNESIUM SULFATE
     Route: 065
     Dates: start: 20210721, end: 20210722
  5. DEXAMETHASONE SODIUM PHOSPHATE [Concomitant]
     Active Substance: DEXAMETHASONE SODIUM PHOSPHATE
     Route: 065
     Dates: start: 20210722, end: 20210722
  6. DEXAMETHASONE SODIUM PHOSPHATE [Concomitant]
     Active Substance: DEXAMETHASONE SODIUM PHOSPHATE
     Route: 041
     Dates: start: 20210721, end: 20210721
  7. MANNITOL [Concomitant]
     Active Substance: MANNITOL
     Route: 041
     Dates: start: 20210721, end: 20210721
  8. MANNITOL [Concomitant]
     Active Substance: MANNITOL
     Route: 065
     Dates: start: 20210721, end: 20210722
  9. LIDOCAINE HYDROCHLORIDE [Concomitant]
     Active Substance: LIDOCAINE HYDROCHLORIDE
     Route: 065
     Dates: start: 20210722, end: 20210722
  10. FERRIC SULFATE [Concomitant]
     Active Substance: FERRIC SULFATE

REACTIONS (2)
  - Infusion site extravasation [Recovered/Resolved]
  - Exposure via skin contact [Not Recovered/Not Resolved]

NARRATIVE: CASE EVENT DATE: 20210721
